FAERS Safety Report 24311731 (Version 1)
Quarter: 2024Q3

REPORT INFORMATION
  Report Type: Spontaneous
  Country: PT (occurrence: PT)
  Receive Date: 20240912
  Receipt Date: 20240912
  Transmission Date: 20241016
  Serious: Yes (Hospitalization)
  Sender: ROCHE
  Company Number: PT-ROCHE-10000072747

PATIENT
  Age: 69 Year
  Sex: Female

DRUGS (1)
  1. ADO-TRASTUZUMAB EMTANSINE [Suspect]
     Active Substance: ADO-TRASTUZUMAB EMTANSINE
     Indication: HER2 positive breast cancer
     Route: 065

REACTIONS (5)
  - Pulmonary toxicity [Recovered/Resolved]
  - Confusional state [Recovered/Resolved]
  - Non-cirrhotic portal hypertension [Recovered/Resolved]
  - Generalised oedema [Recovered/Resolved]
  - Hepatic encephalopathy [Recovered/Resolved]
